FAERS Safety Report 18432363 (Version 1)
Quarter: 2020Q4

REPORT INFORMATION
  Report Type: Spontaneous
  Country: CN (occurrence: CN)
  Receive Date: 20201027
  Receipt Date: 20201027
  Transmission Date: 20210114
  Serious: Yes (Other)
  Sender: FDA-Public Use
  Company Number: CN-PFIZER INC-2020413520

PATIENT
  Age: 68 Year
  Sex: Male
  Weight: 61 kg

DRUGS (4)
  1. SOLU-MEDROL [Suspect]
     Active Substance: METHYLPREDNISOLONE SODIUM SUCCINATE
     Indication: PNEUMONIA
     Dosage: 40 MG, 1X/DAY
     Route: 042
     Dates: start: 20200913, end: 20200917
  2. PAI SHU [Suspect]
     Active Substance: PIPERACILLIN SODIUM\SULBACTAM SODIUM
     Indication: INFECTION
     Dosage: 5 G, 3X/DAY
     Route: 041
     Dates: start: 20200911, end: 20200922
  3. SODIUM CHLORIDE. [Concomitant]
     Active Substance: SODIUM CHLORIDE
     Dosage: 100 ML, 3X/DAY
     Route: 041
     Dates: start: 20200912, end: 20200922
  4. SODIUM CHLORIDE. [Concomitant]
     Active Substance: SODIUM CHLORIDE
     Indication: VEHICLE SOLUTION USE
     Dosage: 20 ML, 1X/DAY
     Route: 042
     Dates: start: 20200913, end: 20200917

REACTIONS (1)
  - Transaminases increased [Recovering/Resolving]

NARRATIVE: CASE EVENT DATE: 20200917
